FAERS Safety Report 24289416 (Version 1)
Quarter: 2024Q3

REPORT INFORMATION
  Report Type: Spontaneous
  Country: FR (occurrence: FR)
  Receive Date: 20240906
  Receipt Date: 20240906
  Transmission Date: 20241016
  Serious: Yes (Other)
  Sender: BOEHRINGER INGELHEIM
  Company Number: None

PATIENT
  Age: 72 Year
  Sex: Female
  Weight: 63.8 kg

DRUGS (13)
  1. PRAMIPEXOLE [Suspect]
     Active Substance: PRAMIPEXOLE\PRAMIPEXOLE DIHYDROCHLORIDE
     Indication: Parkinson^s disease
     Route: 048
     Dates: end: 20240809
  2. CEFEPIME [Suspect]
     Active Substance: CEFEPIME HYDROCHLORIDE
     Indication: Arthritis bacterial
     Route: 042
     Dates: start: 20240723, end: 20240730
  3. ATROVENT [Concomitant]
     Active Substance: IPRATROPIUM BROMIDE
     Indication: Product used for unknown indication
  4. PULMICORT TURBUHALER [Concomitant]
     Active Substance: BUDESONIDE
     Indication: Product used for unknown indication
  5. CARVEDILOL [Concomitant]
     Active Substance: CARVEDILOL
     Indication: Product used for unknown indication
  6. APIDRA [Concomitant]
     Active Substance: INSULIN GLULISINE
     Indication: Product used for unknown indication
  7. XULTOPHY 100/3.6 [Concomitant]
     Active Substance: INSULIN DEGLUDEC\LIRAGLUTIDE
     Indication: Product used for unknown indication
  8. BENSERAZIDE HYDROCHLORIDE\LEVODOPA [Concomitant]
     Active Substance: BENSERAZIDE HYDROCHLORIDE\LEVODOPA
     Indication: Product used for unknown indication
  9. LANSOPRAZOLE [Concomitant]
     Active Substance: LANSOPRAZOLE
     Indication: Product used for unknown indication
  10. LEVOTHYROXINE [Concomitant]
     Active Substance: LEVOTHYROXINE\LEVOTHYROXINE SODIUM
     Indication: Product used for unknown indication
  11. ALBUTEROL [Concomitant]
     Active Substance: ALBUTEROL
     Indication: Product used for unknown indication
  12. DAPTOMYCIN [Concomitant]
     Active Substance: DAPTOMYCIN
     Indication: Product used for unknown indication
  13. OXAZEPAM [Concomitant]
     Active Substance: OXAZEPAM
     Indication: Product used for unknown indication

REACTIONS (3)
  - Aphasia [Recovered/Resolved]
  - Cognitive disorder [Recovered/Resolved]
  - Partial seizures [Recovered/Resolved]

NARRATIVE: CASE EVENT DATE: 20240728
